FAERS Safety Report 9761291 (Version 1)
Quarter: 2013Q4

REPORT INFORMATION
  Report Type: Spontaneous
  Country: IT (occurrence: IT)
  Receive Date: 20131216
  Receipt Date: 20131216
  Transmission Date: 20140711
  Serious: Yes (Hospitalization)
  Sender: FDA-Public Use
  Company Number: IT-BAYER-2013-150154

PATIENT
  Age: 97 Year
  Sex: Female

DRUGS (5)
  1. CARDIOASPIRIN [Suspect]
     Indication: POLYPOIDAL CHOROIDAL VASCULOPATHY
     Dosage: DAILY DOSE 100 MG
     Route: 048
     Dates: start: 20110519, end: 20131124
  2. ENAPREN [Suspect]
     Indication: HYPERTENSION
     Dosage: DAILY DOSE 10 MG
     Route: 048
     Dates: start: 20110519, end: 20131124
  3. LANSOX [Concomitant]
     Dosage: DAILY DOSE 30 MG
     Route: 048
  4. CACIT D3 [Concomitant]
  5. TAVOR [LORAZEPAM] [Concomitant]
     Dosage: 1 MG, UNK

REACTIONS (3)
  - Anaemia [Recovered/Resolved]
  - Rectal haemorrhage [Recovered/Resolved]
  - Hyperkalaemia [Not Recovered/Not Resolved]
